FAERS Safety Report 8457855 (Version 2)
Quarter: 2013Q2

REPORT INFORMATION
  Report Type: Spontaneous
  Country: US (occurrence: None)
  Receive Date: 20120227
  Receipt Date: 20120525
  Transmission Date: 20140414
  Serious: Yes (Other)
  Sender: FDA-Public Use
  Company Number: 341576

PATIENT
  Age: 14 Year
  Sex: Female
  Weight: 88 kg

DRUGS (3)
  1. VICTOZA [Suspect]
     Indication: TYPE 2 DIABETES MELLITUS
     Dosage: , SUBCUTANEOUS
     Route: 058
     Dates: start: 20110221, end: 20110928
  2. METFORMIN [Concomitant]
  3. YASMIN (DROSPIRENONE, ETHINYLESTRADIOL) [Concomitant]

REACTIONS (1)
  - Pancreatitis acute [None]
